FAERS Safety Report 19275289 (Version 1)
Quarter: 2021Q2

REPORT INFORMATION
  Report Type: Report from Study
  Country: KR (occurrence: KR)
  Receive Date: 20210519
  Receipt Date: 20210519
  Transmission Date: 20210717
  Serious: Yes (Other)
  Sender: FDA-Public Use
  Company Number: KR-AMGEN-KORSL2021074181

PATIENT
  Age: 64 Year
  Sex: Male

DRUGS (1)
  1. REPATHA [Suspect]
     Active Substance: EVOLOCUMAB
     Indication: PRODUCT USED FOR UNKNOWN INDICATION
     Dosage: 140 MILLIGRAM, Q2WK
     Route: 065
     Dates: start: 20210429, end: 20210503

REACTIONS (4)
  - Chapped lips [Unknown]
  - Myalgia [Unknown]
  - Chills [Unknown]
  - Conjunctival haemorrhage [Unknown]

NARRATIVE: CASE EVENT DATE: 20210503
